FAERS Safety Report 25466931 (Version 1)
Quarter: 2025Q2

REPORT INFORMATION
  Report Type: Spontaneous
  Country: CN (occurrence: CN)
  Receive Date: 20250623
  Receipt Date: 20250623
  Transmission Date: 20250717
  Serious: Yes (Other)
  Sender: ACCORD
  Company Number: None

PATIENT
  Age: 37 Year
  Sex: Female
  Weight: 53.2 kg

DRUGS (2)
  1. TRASTUZUMAB [Suspect]
     Active Substance: TRASTUZUMAB
     Indication: Breast cancer
     Dosage: 150 MILLIGRAM IV DRIP
     Route: 042
     Dates: start: 20250603, end: 20250603
  2. PACLITAXEL [Suspect]
     Active Substance: PACLITAXEL
     Indication: Breast cancer
     Dosage: 380 MILLIGRAM, QD  IV DRIP
     Route: 042
     Dates: start: 20250603, end: 20250603

REACTIONS (2)
  - Myelosuppression [Unknown]
  - Hepatic function abnormal [Unknown]

NARRATIVE: CASE EVENT DATE: 20250606
